FAERS Safety Report 6385333-4 (Version None)
Quarter: 2009Q4

REPORT INFORMATION
  Report Type: 
  Country: None (occurrence: None)
  Receive Date: 20091002
  Receipt Date: 20080822
  Transmission Date: 20100525
  Serious: No
  Sender: FDA-Public Use
  Company Number: US-ASTRAZENECA-2008UW17198

PATIENT
  Age: 49 Year
  Sex: Female
  Weight: 54.4 kg

DRUGS (2)
  1. ARIMIDEX [Suspect]
     Indication: BREAST CANCER
     Route: 048
     Dates: start: 20080501
  2. VITAMINS [Concomitant]

REACTIONS (4)
  - ARTHRALGIA [None]
  - DYSPHAGIA [None]
  - OROPHARYNGEAL PAIN [None]
  - POSTNASAL DRIP [None]
